FAERS Safety Report 7648026-9 (Version None)
Quarter: 2011Q3

REPORT INFORMATION
  Report Type: 
  Country: None (occurrence: None)
  Receive Date: 20110726
  Receipt Date: 20110713
  Transmission Date: 20111222
  Serious: Yes (Other)
  Sender: FDA-Public Use
  Company Number: IT-1187128

PATIENT
  Age: 53 Year
  Sex: Male

DRUGS (6)
  1. COSOPT [Suspect]
     Indication: INTRAOCULAR PRESSURE INCREASED
     Dosage: 1 GTT QD OPHTHALMIC
     Route: 047
     Dates: start: 20110516, end: 20110518
  2. IOPIDINE [Suspect]
     Indication: INTRAOCULAR PRESSURE INCREASED
     Dosage: 1 GTT QD OPHTHALMIC
     Route: 047
     Dates: start: 20110516, end: 20110518
  3. OFTACILOX 0.3 % OPHTHALMIC SOLUTION (OFTACILOX 0.3% EYE DROPS SOLUTION [Suspect]
     Indication: EYE INFECTION
     Dosage: 1 GTT QD OPHTHALMIC
     Route: 047
     Dates: start: 20110516, end: 20110518
  4. BETADINE [Suspect]
     Indication: INFECTION PROPHYLAXIS
     Dosage: TOPICAL
     Route: 061
     Dates: start: 20110516, end: 20110518
  5. HYALURONIDASE [Suspect]
     Indication: LOCAL ANAESTHESIA
     Dosage: SUBCUTANEOUS
     Route: 058
     Dates: start: 20110516, end: 20110518
  6. NAROPINA 0.5% INJECTION (NAROPINA 5MG/ML SOLUTIO FOR INJECTION) (ASTRA [Suspect]
     Indication: LOCAL ANAESTHESIA
     Dosage: SUBCUTANEOUS
     Route: 058
     Dates: start: 20110516, end: 20110518

REACTIONS (1)
  - ANGIOEDEMA [None]
